FAERS Safety Report 9813589 (Version 2)
Quarter: 2014Q2

REPORT INFORMATION
  Report Type: Spontaneous
  Country: US (occurrence: US)
  Receive Date: 20140113
  Receipt Date: 20140422
  Transmission Date: 20141212
  Serious: Yes (Other)
  Sender: FDA-Public Use
  Company Number: US-PFIZER INC-2014004849

PATIENT
  Age: 67 Year
  Sex: Female

DRUGS (3)
  1. REVATIO [Suspect]
     Dosage: UNK
  2. LETAIRIS [Suspect]
     Indication: PULMONARY HYPERTENSION
     Dosage: 10 MG, EVERY DAY (QD)
     Dates: start: 20131223
  3. LETAIRIS [Suspect]
     Indication: EMBOLISM VENOUS

REACTIONS (2)
  - Dyspnoea [Unknown]
  - Pneumonia [Unknown]
